FAERS Safety Report 16039398 (Version 1)
Quarter: 2019Q1

REPORT INFORMATION
  Report Type: Report from Study
  Country: None (occurrence: NL)
  Receive Date: 20190306
  Receipt Date: 20190306
  Transmission Date: 20190418
  Serious: Yes (Hospitalization)
  Sender: FDA-Public Use
  Company Number: NL-ABBVIE-19S-114-2690302-00

PATIENT
  Sex: Male

DRUGS (1)
  1. DUODOPA [Suspect]
     Active Substance: CARBIDOPA\LEVODOPA
     Indication: PARKINSON^S DISEASE
     Dosage: MD: 9.7, CD: 2.7, ED: 3.0 16 HOUR ADMINISTRATION
     Route: 050
     Dates: start: 20130603

REACTIONS (3)
  - Disinhibition [Not Recovered/Not Resolved]
  - Parkinson^s disease [Not Recovered/Not Resolved]
  - Attention deficit/hyperactivity disorder [Not Recovered/Not Resolved]
